FAERS Safety Report 6943232-0 (Version None)
Quarter: 2010Q3

REPORT INFORMATION
  Report Type: 
  Country: None (occurrence: None)
  Receive Date: 20100825
  Receipt Date: 20100825
  Transmission Date: 20110219
  Serious: Yes (Life-Threatening)
  Sender: FDA-Public Use
  Company Number: None

PATIENT
  Age: 40 Year
  Sex: Male
  Weight: 101 kg

DRUGS (2)
  1. BUPRENORPHINE HCL AND NALOXONE HCL [Suspect]
     Dosage: 2 TAB EVERY DAY SUBLINGUAL
     Route: 060
     Dates: start: 20100414, end: 20100416
  2. BUPRENORPHINE HCL AND NALOXONE HCL [Suspect]
     Dosage: 1 TAB EVERY DAY SUBLINGUAL
     Route: 060
     Dates: start: 20100414, end: 20100416

REACTIONS (1)
  - HEPATITIS [None]
